FAERS Safety Report 6810860-2 (Version None)
Quarter: 2010Q2

REPORT INFORMATION
  Report Type: 
  Country: None (occurrence: None)
  Receive Date: 20100630
  Receipt Date: 20080613
  Transmission Date: 20101027
  Serious: No
  Sender: FDA-Public Use
  Company Number: US-PFIZER INC-2008049847

PATIENT
  Age: 89 Year
  Sex: Female

DRUGS (1)
  1. ESTRING [Suspect]

REACTIONS (3)
  - SKIN DISCOLOURATION [None]
  - VULVOVAGINAL BURNING SENSATION [None]
  - VULVOVAGINAL ERYTHEMA [None]
